FAERS Safety Report 16996577 (Version 4)
Quarter: 2019Q4

REPORT INFORMATION
  Report Type: Report from Study
  Country: US (occurrence: US)
  Receive Date: 20191106
  Receipt Date: 20191209
  Transmission Date: 20200122
  Serious: Yes (Hospitalization, Other)
  Sender: FDA-Public Use
  Company Number: US-B.I. PHARMACEUTICALS,INC./RIDGEFIELD-2019-MR-000989

PATIENT
  Age: 75 Year
  Sex: Male

DRUGS (1)
  1. OFEV [Suspect]
     Active Substance: NINTEDANIB
     Indication: IDIOPATHIC PULMONARY FIBROSIS
     Dosage: 150MG ORALLY TWICE DAILY
     Route: 048
     Dates: start: 20190805

REACTIONS (23)
  - Drug intolerance [Unknown]
  - Constipation [Unknown]
  - Headache [Unknown]
  - Urinary bladder haemorrhage [Recovered/Resolved]
  - Productive cough [Unknown]
  - Nausea [Unknown]
  - Vomiting [Unknown]
  - Insomnia [Unknown]
  - Dyspnoea [Unknown]
  - Hyperhidrosis [Unknown]
  - Faeces hard [Unknown]
  - Micturition disorder [Unknown]
  - Abdominal pain upper [Recovering/Resolving]
  - Abdominal pain upper [Unknown]
  - Blood pressure fluctuation [Unknown]
  - Constipation [Recovering/Resolving]
  - Decreased appetite [Unknown]
  - Urinary bladder haemorrhage [Unknown]
  - Diarrhoea [Unknown]
  - Myalgia [Unknown]
  - Pneumonia [Recovered/Resolved]
  - Pain [Unknown]
  - Blood pressure increased [Unknown]

NARRATIVE: CASE EVENT DATE: 20191022
